FAERS Safety Report 13493135 (Version 2)
Quarter: 2020Q1

REPORT INFORMATION
  Report Type: Report from Study
  Country: CA (occurrence: CA)
  Receive Date: 20170427
  Receipt Date: 20200121
  Transmission Date: 20200409
  Serious: Yes (Hospitalization, Other)
  Sender: FDA-Public Use
  Company Number: CA-AMGEN-CANSL2017063193

PATIENT
  Age: 71 Year
  Sex: Female

DRUGS (11)
  1. CALCIUM + VIT D [Concomitant]
     Active Substance: CALCIUM\VITAMIN D
  2. ADALAT [Concomitant]
     Active Substance: NIFEDIPINE
     Dosage: 20 MG, UNK
  3. VIT D [Concomitant]
     Active Substance: VITAMIN D NOS
  4. CALCIUM [Concomitant]
     Active Substance: CALCIUM
  5. PROLIA [Suspect]
     Active Substance: DENOSUMAB
     Indication: PRODUCT USED FOR UNKNOWN INDICATION
     Dosage: 60 MILLIGRAM PER MILLILITRE
     Route: 065
     Dates: start: 20140121
  6. MESTINON [Concomitant]
     Active Substance: PYRIDOSTIGMINE BROMIDE
     Dosage: 60 MILLIGRAM, TID
     Dates: start: 2004
  7. METFORMIN [Concomitant]
     Active Substance: METFORMIN HYDROCHLORIDE
  8. LORAZEPAM. [Concomitant]
     Active Substance: LORAZEPAM
  9. CORTISONE [Concomitant]
     Active Substance: CORTISONE
  10. COVERSYL [Concomitant]
     Active Substance: PERINDOPRIL
     Dosage: 8 MG, UNK
  11. PANTOLOC [PANTOPRAZOLE] [Concomitant]
     Active Substance: PANTOPRAZOLE SODIUM

REACTIONS (9)
  - Myalgia [Unknown]
  - Hypertension [Unknown]
  - Joint stiffness [Not Recovered/Not Resolved]
  - Blood sodium decreased [Unknown]
  - Gait inability [Unknown]
  - Malaise [Unknown]
  - Feeling of body temperature change [Unknown]
  - Musculoskeletal stiffness [Unknown]
  - Bone pain [Unknown]

NARRATIVE: CASE EVENT DATE: 201702
